FAERS Safety Report 5458004-6 (Version None)
Quarter: 2007Q3

REPORT INFORMATION
  Report Type: 
  Country: None (occurrence: None)
  Receive Date: 20070917
  Receipt Date: 20070911
  Transmission Date: 20080115
  Serious: Yes (Death, Other)
  Sender: FDA-Public Use
  Company Number: 056-20785-07090511

PATIENT

DRUGS (5)
  1. THALOMID [Suspect]
     Indication: SMALL CELL LUNG CANCER STAGE UNSPECIFIED
     Dosage: 400 MG, DAILY
  2. ETOPOSIDE [Suspect]
     Indication: SMALL CELL LUNG CANCER STAGE UNSPECIFIED
     Dosage: 100 MG/M2, DAYS 1-3 Q28D,
  3. CISPLATIN [Suspect]
     Indication: SMALL CELL LUNG CANCER STAGE UNSPECIFIED
     Dosage: 100 MG/M2, DAY 2 Q28D,
  4. CYCLOPHOSPHAMIDE [Suspect]
     Indication: SMALL CELL LUNG CANCER STAGE UNSPECIFIED
     Dosage: 400 MG/M2, DAYS 1-3 Q28D,
  5. EPIDOXORUBICIN (EPIRUBICIN) [Suspect]
     Indication: SMALL CELL LUNG CANCER STAGE UNSPECIFIED
     Dosage: 40 MG/M2, DAY 1 Q28D,

REACTIONS (7)
  - BONE MARROW FAILURE [None]
  - CONSTIPATION [None]
  - DRUG TOXICITY [None]
  - FEBRILE NEUTROPENIA [None]
  - FLUID RETENTION [None]
  - NEUROPATHY [None]
  - VOMITING [None]
